FAERS Safety Report 5131477-4 (Version None)
Quarter: 2006Q4

REPORT INFORMATION
  Report Type: 
  Country: None (occurrence: None)
  Receive Date: 20061016
  Receipt Date: 20061003
  Transmission Date: 20070319
  Serious: Yes (Other)
  Sender: FDA-Public Use
  Company Number: 2006121295

PATIENT
  Age: 55 Year
  Sex: Female
  Weight: 65 kg

DRUGS (2)
  1. VORICONAZOLE (VORICONAZOLE) [Suspect]
     Indication: CANDIDIASIS
     Dosage: 200 MG, 2 IN 1 D, ORAL
     Route: 048
     Dates: start: 20041201, end: 20050601
  2. FUROSEMIDE [Concomitant]

REACTIONS (2)
  - BLISTER [None]
  - PSEUDOPORPHYRIA [None]
